FAERS Safety Report 5045117-6 (Version None)
Quarter: 2006Q3

REPORT INFORMATION
  Report Type: 
  Country: None (occurrence: None)
  Receive Date: 20060705
  Receipt Date: 20060626
  Transmission Date: 20061208
  Serious: Yes (Hospitalization)
  Sender: FDA-Public Use
  Company Number: 2006BI007125

PATIENT
  Age: 40 Year
  Sex: Male

DRUGS (7)
  1. AVONEX [Suspect]
     Indication: MULTIPLE SCLEROSIS
     Dosage: 30 UG;QW;IM
     Route: 030
     Dates: start: 20030403
  2. AVONEX [Suspect]
     Indication: MULTIPLE SCLEROSIS
     Dosage: 30 UG;QW;IM
     Route: 030
     Dates: start: 20050330, end: 20051001
  3. AVONEX [Suspect]
     Indication: MULTIPLE SCLEROSIS
  4. TOPROL-XL [Concomitant]
  5. PREDNISONE [Concomitant]
  6. ELAVIL [Concomitant]
  7. DYAZIDE [Concomitant]

REACTIONS (3)
  - FATIGUE [None]
  - MYALGIA [None]
  - RENAL CELL CARCINOMA STAGE UNSPECIFIED [None]
